FAERS Safety Report 5715936-9 (Version None)
Quarter: 2008Q2

REPORT INFORMATION
  Report Type: 
  Country: None (occurrence: None)
  Receive Date: 20080424
  Receipt Date: 20080415
  Transmission Date: 20081010
  Serious: Yes (Other)
  Sender: FDA-Public Use
  Company Number: DK-ASTRAZENECA-2008SE01627

PATIENT
  Age: 11986 Day
  Sex: Female

DRUGS (5)
  1. SEROQUEL [Suspect]
     Route: 048
  2. SEROQUEL [Interacting]
     Route: 048
     Dates: start: 20071205
  3. RITALIN TAB [Interacting]
     Indication: ATTENTION DEFICIT/HYPERACTIVITY DISORDER
     Dates: start: 20071016
  4. RITALIN TAB [Interacting]
     Route: 048
     Dates: start: 20071205
  5. NOVYNETTE [Interacting]
     Indication: CONTRACEPTION
     Route: 048

REACTIONS (3)
  - ABORTION SPONTANEOUS [None]
  - DRUG INTERACTION [None]
  - PREGNANCY ON ORAL CONTRACEPTIVE [None]
